FAERS Safety Report 6983459-5 (Version None)
Quarter: 2010Q3

REPORT INFORMATION
  Report Type: 
  Country: None (occurrence: None)
  Receive Date: 20100914
  Receipt Date: 20080527
  Transmission Date: 20110219
  Serious: No
  Sender: FDA-Public Use
  Company Number: US-WYE-H04275908

PATIENT
  Age: 54 Year
  Sex: Female
  Weight: 56.75 kg

DRUGS (3)
  1. ADVIL LIQUI-GELS [Suspect]
     Indication: PYREXIA
     Dosage: 2 CAPLETS DAILY
     Route: 048
     Dates: start: 20080523, end: 20080526
  2. ADVIL LIQUI-GELS [Suspect]
     Indication: PAIN
  3. AZITHROMYCIN [Concomitant]

REACTIONS (2)
  - ERYTHEMA [None]
  - OROPHARYNGEAL BLISTERING [None]
